FAERS Safety Report 8273298-X (Version None)
Quarter: 2012Q2

REPORT INFORMATION
  Report Type: 
  Country: None (occurrence: None)
  Receive Date: 20120411
  Receipt Date: 20120408
  Transmission Date: 20120825
  Serious: Yes (Hospitalization, Other)
  Sender: FDA-Public Use
  Company Number: FR-PFIZER INC-2012064094

PATIENT
  Age: 70 Year
  Sex: Male

DRUGS (13)
  1. FEBUXOSTAT [Concomitant]
     Dosage: 80 MG
  2. TRIMEPRAZINE TARTRATE [Interacting]
     Indication: INSOMNIA
     Dosage: UNK
     Route: 048
     Dates: end: 20111220
  3. CRESTOR [Concomitant]
     Dosage: 5 MG
  4. HUMALOG [Concomitant]
     Dosage: UNK
  5. ATARAX [Interacting]
     Indication: ANXIETY
     Dosage: 25 MG, 3X/DAY
     Route: 048
     Dates: end: 20111220
  6. ZOLPIDEM TARTRATE [Interacting]
     Indication: INSOMNIA
     Dosage: 2 DF, 1X/DAY
     Route: 048
     Dates: end: 20111226
  7. ACETAMINOPHEN [Concomitant]
     Dosage: 600 MG (4 DF, 1X/DAY)
  8. ALUMINIUM + MAGNESIUM HYDROXIDE/DIMETICONE [Concomitant]
     Dosage: UNK
  9. LYRICA [Suspect]
     Dosage: 25 MG (1 DF, 1X/DAY)
     Route: 048
     Dates: end: 20111220
  10. NITROGLYCERIN [Interacting]
     Dosage: UNK
     Route: 062
     Dates: end: 20111201
  11. PARACETAMOL [Concomitant]
     Dosage: 1 G
  12. CANDESARTAN CILEXETIL AND HYDROCHLOROTHIAZIDE [Interacting]
     Dosage: 16 MG/12.5 MG
     Route: 048
     Dates: end: 20111201
  13. LANTUS [Concomitant]
     Dosage: UNK

REACTIONS (10)
  - ORTHOSTATIC HYPOTENSION [None]
  - ABNORMAL BEHAVIOUR [None]
  - DRUG INTERACTION [None]
  - RENAL FAILURE ACUTE [None]
  - FALL [None]
  - DISORIENTATION [None]
  - PNEUMONIA [None]
  - CEREBRAL MICROANGIOPATHY [None]
  - HYPERKALAEMIA [None]
  - RHABDOMYOLYSIS [None]
